FAERS Safety Report 24085296 (Version 1)
Quarter: 2024Q3

REPORT INFORMATION
  Report Type: Spontaneous
  Country: US (occurrence: US)
  Receive Date: 20240712
  Receipt Date: 20240712
  Transmission Date: 20241016
  Serious: No
  Sender: PERRIGO
  Company Number: US-PERRIGO-23US009267

PATIENT
  Age: 21 Year
  Sex: Female

DRUGS (1)
  1. MOTRIN IB [Suspect]
     Active Substance: IBUPROFEN
     Indication: Dysmenorrhoea
     Dosage: 600 MG, RIGHT AWAY, THEN 200 MG EVERY 2 HOURS
     Route: 048
     Dates: start: 20230604, end: 20230813

REACTIONS (4)
  - Salivary hypersecretion [Unknown]
  - Incorrect dose administered [Unknown]
  - Overdose [Unknown]
  - Inappropriate schedule of product administration [Unknown]

NARRATIVE: CASE EVENT DATE: 20230604
